FAERS Safety Report 18637740 (Version 8)
Quarter: 2021Q3

REPORT INFORMATION
  Report Type: Report from Study
  Country: US (occurrence: US)
  Receive Date: 20201218
  Receipt Date: 20210712
  Transmission Date: 20211014
  Serious: Yes (Other)
  Sender: FDA-Public Use
  Company Number: NVSC2020US336900

PATIENT
  Age: 47 Year
  Sex: Male

DRUGS (1)
  1. ENTRESTO [Suspect]
     Active Substance: SACUBITRIL\VALSARTAN
     Indication: PRODUCT USED FOR UNKNOWN INDICATION
     Dosage: 1 DF(24/26 MG), BID
     Route: 048
     Dates: start: 20201213

REACTIONS (9)
  - Product dose omission issue [Unknown]
  - Weight fluctuation [Unknown]
  - Fatigue [Unknown]
  - Lower respiratory tract infection [Recovering/Resolving]
  - Hypertension [Recovering/Resolving]
  - Product dose omission issue [Recovered/Resolved]
  - Headache [Unknown]
  - Cough [Recovering/Resolving]
  - Hypersomnia [Recovering/Resolving]

NARRATIVE: CASE EVENT DATE: 20210327
